FAERS Safety Report 12620825 (Version 2)
Quarter: 2016Q3

REPORT INFORMATION
  Report Type: Spontaneous
  Country: US (occurrence: US)
  Receive Date: 20160804
  Receipt Date: 20160818
  Transmission Date: 20161109
  Serious: No
  Sender: FDA-Public Use
  Company Number: US-BEH-2016071738

PATIENT
  Sex: Female
  Weight: 48.98 kg

DRUGS (19)
  1. DIPHENHYDRAMINE. [Concomitant]
     Active Substance: DIPHENHYDRAMINE
  2. LMX                                /00033401/ [Concomitant]
  3. BUDESONIDE. [Concomitant]
     Active Substance: BUDESONIDE
  4. EPIPEN [Concomitant]
     Active Substance: EPINEPHRINE
  5. PREDNISONE. [Concomitant]
     Active Substance: PREDNISONE
  6. SPIRIVA [Concomitant]
     Active Substance: TIOTROPIUM BROMIDE MONOHYDRATE
  7. ZEMAIRA [Suspect]
     Active Substance: .ALPHA.1-PROTEINASE INHIBITOR HUMAN
     Indication: ALPHA-1 ANTI-TRYPSIN DEFICIENCY
     Dosage: 60 MG/KG, QW
     Route: 042
     Dates: start: 20120717
  8. PERFOROMIST [Concomitant]
     Active Substance: FORMOTEROL FUMARATE DIHYDRATE
  9. ESTRADIOL. [Concomitant]
     Active Substance: ESTRADIOL
  10. SODIUM CHLORIDE. [Concomitant]
     Active Substance: SODIUM CHLORIDE
  11. OXYGEN. [Concomitant]
     Active Substance: OXYGEN
  12. VITAMIN D                          /00107901/ [Concomitant]
     Active Substance: ERGOCALCIFEROL
  13. AZITHROMYCIN ANHYDROUS. [Concomitant]
     Active Substance: AZITHROMYCIN ANHYDROUS
  14. BIOTIN [Concomitant]
     Active Substance: BIOTIN
  15. LAMOTRIGINE. [Concomitant]
     Active Substance: LAMOTRIGINE
  16. PROAIR HFA [Concomitant]
     Active Substance: ALBUTEROL SULFATE
  17. ESOMEPRAZOLE [Concomitant]
     Active Substance: ESOMEPRAZOLE
  18. LORAZEPAM. [Concomitant]
     Active Substance: LORAZEPAM
  19. ALBUTEROL                          /00139501/ [Concomitant]
     Active Substance: ALBUTEROL

REACTIONS (1)
  - Bronchitis [Unknown]
